FAERS Safety Report 4474678-0 (Version None)
Quarter: 2004Q4

REPORT INFORMATION
  Report Type: 
  Country: None (occurrence: None)
  Receive Date: 20041012
  Receipt Date: 20040930
  Transmission Date: 20050328
  Serious: Yes (Death, Other)
  Sender: FDA-Public Use
  Company Number: 2004-09-1168

PATIENT
  Age: 69 Year
  Sex: Male
  Weight: 76 kg

DRUGS (2)
  1. PEG-INTRON [Suspect]
     Indication: MALIGNANT MELANOMA
     Dosage: 100 UG
  2. BAYPRESS [Concomitant]

REACTIONS (3)
  - ABDOMINAL PAIN [None]
  - SUDDEN DEATH [None]
  - VOMITING [None]
